FAERS Safety Report 4603693-9 (Version None)
Quarter: 2005Q1

REPORT INFORMATION
  Report Type: 
  Country: None (occurrence: None)
  Receive Date: 20050310
  Receipt Date: 20050221
  Transmission Date: 20050727
  Serious: Yes (Hospitalization)
  Sender: FDA-Public Use
  Company Number: US-JNJFOC-20040606924

PATIENT
  Age: 29 Year
  Sex: Female

DRUGS (2)
  1. LOPERAMIDE HCL [Suspect]
  2. ANTIBIOTIC [Concomitant]

REACTIONS (4)
  - COLON GANGRENE [None]
  - CONSTIPATION [None]
  - LARGE INTESTINE PERFORATION [None]
  - PERITONITIS [None]
